FAERS Safety Report 16201467 (Version 1)
Quarter: 2019Q2

REPORT INFORMATION
  Report Type: Spontaneous
  Country: FR (occurrence: FR)
  Receive Date: 20190416
  Receipt Date: 20190416
  Transmission Date: 20190711
  Serious: Yes (Hospitalization, Other)
  Sender: FDA-Public Use
  Company Number: FR-AUROBINDO-AUR-APL-2019-021667

PATIENT

DRUGS (2)
  1. BELEODAQ [Suspect]
     Active Substance: BELINOSTAT
     Indication: PERIPHERAL T-CELL LYMPHOMA UNSPECIFIED
     Dosage: 1000 MILLIGRAM/SQ. METER, CYCLICAL
     Route: 042
     Dates: start: 20181217
  2. BELEODAQ [Suspect]
     Active Substance: BELINOSTAT
     Dosage: 1000 MILLIGRAM/SQ. METER, CYCLICAL
     Route: 042
     Dates: start: 20190114

REACTIONS (2)
  - Sinus tachycardia [Recovered/Resolved]
  - Vomiting [Recovered/Resolved]

NARRATIVE: CASE EVENT DATE: 20181221
